FAERS Safety Report 8329149-8 (Version None)
Quarter: 2012Q2

REPORT INFORMATION
  Report Type: 
  Country: None (occurrence: None)
  Receive Date: 20120502
  Receipt Date: 20120426
  Transmission Date: 20120825
  Serious: Yes (Life-Threatening, Hospitalization, Other)
  Sender: FDA-Public Use
  Company Number: US-ASTRAZENECA-2010SE42341

PATIENT
  Age: 66 Year
  Sex: Female
  Weight: 90.3 kg

DRUGS (12)
  1. SEROQUEL [Suspect]
     Route: 048
     Dates: start: 20080101, end: 20101201
  2. SEROQUEL [Suspect]
     Indication: INSOMNIA
     Route: 048
  3. ATIVAN [Concomitant]
  4. SEROQUEL [Suspect]
     Route: 048
  5. SEROQUEL [Suspect]
     Route: 048
  6. SEROQUEL [Suspect]
     Route: 048
  7. SEROQUEL [Suspect]
     Indication: SLEEP DISORDER
     Route: 048
  8. SEROQUEL [Suspect]
     Indication: DEPRESSION
     Route: 048
  9. PAXIL [Concomitant]
  10. SOMA [Concomitant]
  11. SEROQUEL [Suspect]
     Route: 048
     Dates: start: 20080101, end: 20101201
  12. SEROQUEL [Suspect]
     Route: 048
     Dates: start: 20080101, end: 20101201

REACTIONS (15)
  - LOWER LIMB FRACTURE [None]
  - WEIGHT INCREASED [None]
  - INTENTIONAL DRUG MISUSE [None]
  - CARDIAC ARREST [None]
  - FALL [None]
  - NOSOPHOBIA [None]
  - HAEMORRHAGE [None]
  - SPLENIC INJURY [None]
  - POST PROCEDURAL COMPLICATION [None]
  - THINKING ABNORMAL [None]
  - INSOMNIA [None]
  - COMA [None]
  - LIMB CRUSHING INJURY [None]
  - PSYCHIATRIC SYMPTOM [None]
  - MEMORY IMPAIRMENT [None]
